FAERS Safety Report 10771682 (Version 2)
Quarter: 2015Q1

REPORT INFORMATION
  Report Type: Spontaneous
  Country: US (occurrence: US)
  Receive Date: 20150206
  Receipt Date: 20150303
  Transmission Date: 20150721
  Serious: Yes (Death)
  Sender: FDA-Public Use
  Company Number: US-CELGENE-USA-2015021134

PATIENT
  Age: 83 Year
  Sex: Male

DRUGS (11)
  1. FLUTICASONE PROPIONATE. [Concomitant]
     Active Substance: FLUTICASONE PROPIONATE
     Indication: PRODUCT USED FOR UNKNOWN INDICATION
     Route: 065
  2. CEFEPIME [Concomitant]
     Active Substance: CEFEPIME\CEFEPIME HYDROCHLORIDE
     Indication: NEUTROPENIA
  3. MICAFUNGIN [Concomitant]
     Active Substance: MICAFUNGIN
     Indication: NEUTROPENIA
  4. REVLIMID [Suspect]
     Active Substance: LENALIDOMIDE
     Indication: 5Q MINUS SYNDROME
     Dosage: 10 MILLIGRAM
     Route: 048
     Dates: start: 20150120, end: 20150201
  5. VORICONAZOLE. [Concomitant]
     Active Substance: VORICONAZOLE
     Indication: NEUTROPENIA
  6. FUROSEMIDE. [Concomitant]
     Active Substance: FUROSEMIDE
     Indication: OEDEMA
     Route: 041
     Dates: start: 20150112, end: 20150201
  7. OMEPRAZOLE. [Concomitant]
     Active Substance: OMEPRAZOLE
     Indication: PRODUCT USED FOR UNKNOWN INDICATION
     Route: 065
  8. MICAFUNGIN [Concomitant]
     Active Substance: MICAFUNGIN
     Indication: PYREXIA
     Route: 041
     Dates: start: 20150112, end: 20150201
  9. LEVOFLOXACIN. [Concomitant]
     Active Substance: LEVOFLOXACIN
     Indication: PRODUCT USED FOR UNKNOWN INDICATION
     Route: 065
  10. CEFEPIME [Concomitant]
     Active Substance: CEFEPIME\CEFEPIME HYDROCHLORIDE
     Indication: PYREXIA
     Route: 041
     Dates: start: 20150112, end: 20150201
  11. VORICONAZOLE. [Concomitant]
     Active Substance: VORICONAZOLE
     Indication: PYREXIA
     Route: 041
     Dates: start: 20150112, end: 20150201

REACTIONS (1)
  - Myelodysplastic syndrome [Fatal]

NARRATIVE: CASE EVENT DATE: 20150202
